FAERS Safety Report 10410626 (Version 1)
Quarter: 2014Q3

REPORT INFORMATION
  Report Type: Report from Study
  Country: ES (occurrence: ES)
  Receive Date: 20140826
  Receipt Date: 20140826
  Transmission Date: 20150326
  Serious: Yes (Hospitalization)
  Sender: FDA-Public Use
  Company Number: ES-PFIZER INC-2014233543

PATIENT
  Age: 73 Year
  Sex: Male
  Weight: 55 kg

DRUGS (14)
  1. CISPLATIN. [Suspect]
     Active Substance: CISPLATIN
     Indication: GASTRIC CANCER
     Dosage: 47 MG, 1X/DAY
     Route: 042
     Dates: start: 20040729, end: 20040920
  2. NEUPOGEN [Concomitant]
     Active Substance: FILGRASTIM
     Indication: LEUKOPENIA
     Dosage: 1 DF, 1X/DAY
     Route: 058
     Dates: start: 20040927, end: 20041007
  3. CLEXANE [Concomitant]
     Active Substance: ENOXAPARIN SODIUM
  4. CAMPTO [Suspect]
     Active Substance: IRINOTECAN
     Indication: GASTRIC CANCER
     Dosage: 100 MG, 1X/DAY
     Route: 042
     Dates: start: 20040729, end: 20040920
  5. FORTASEC [Concomitant]
     Active Substance: LOPERAMIDE HYDROCHLORIDE
  6. MEPRAZOL [Concomitant]
     Indication: PROPHYLAXIS
     Dosage: 40 MG, 1X/DAY
     Route: 048
     Dates: start: 20040721
  7. ORFIDAL [Concomitant]
     Active Substance: LORAZEPAM
  8. ACETILCISTEINA [Concomitant]
     Active Substance: ACETYLCYSTEINE
  9. GLIBENCLAMIDA [Concomitant]
     Indication: DIABETES MELLITUS
     Dosage: 2.5 MG, 1X/DAY
     Route: 048
     Dates: start: 20040723
  10. ERYTHROPOIETIN [Concomitant]
     Active Substance: ERYTHROPOIETIN
     Indication: ANAEMIA
     Dosage: 40000 IU, 1X/DAY
     Route: 058
     Dates: start: 20040826
  11. MOTILIUM [Concomitant]
     Active Substance: DOMPERIDONE
  12. FELDENE [Concomitant]
     Active Substance: PIROXICAM
  13. BAYCIP IV [Concomitant]
     Indication: PROPHYLAXIS
     Dosage: 800 MG, 1X/DAY
     Route: 042
     Dates: start: 20041001, end: 20041015
  14. LOITIN [Concomitant]

REACTIONS (7)
  - Tachycardia [Unknown]
  - Diarrhoea [Unknown]
  - Cardiac failure congestive [Unknown]
  - Pancytopenia [Unknown]
  - Pulmonary oedema [Unknown]
  - Asthenia [Unknown]
  - Atrial flutter [Unknown]

NARRATIVE: CASE EVENT DATE: 20040927
